FAERS Safety Report 15274611 (Version 1)
Quarter: 2018Q3

REPORT INFORMATION
  Report Type: Report from Study
  Country: DE (occurrence: DE)
  Receive Date: 20180814
  Receipt Date: 20180814
  Transmission Date: 20181010
  Serious: Yes (Other)
  Sender: FDA-Public Use
  Company Number: DE-ROCHE-2167312

PATIENT
  Age: 64 Year
  Sex: Male

DRUGS (1)
  1. TOCILIZUMAB. [Suspect]
     Active Substance: TOCILIZUMAB
     Indication: RHEUMATOID ARTHRITIS
     Route: 065

REACTIONS (4)
  - Arteriosclerosis [Unknown]
  - Hepatic enzyme increased [Unknown]
  - Osteopenia [Unknown]
  - Hepatitis E antigen positive [Unknown]

NARRATIVE: CASE EVENT DATE: 20171004
